FAERS Safety Report 12438251 (Version 5)
Quarter: 2016Q4

REPORT INFORMATION
  Report Type: Report from Study
  Country: BR (occurrence: BR)
  Receive Date: 20160606
  Receipt Date: 20161129
  Transmission Date: 20170207
  Serious: Yes (Life-Threatening)
  Sender: FDA-Public Use
  Company Number: PHHY2016BR032856

PATIENT
  Sex: Female
  Weight: 95 kg

DRUGS (2)
  1. CLAVULIN [Suspect]
     Active Substance: AMOXICILLIN\CLAVULANIC ACID
     Indication: SINUSITIS
     Route: 065
  2. SANDOSTATIN LAR DEPOT [Suspect]
     Active Substance: OCTREOTIDE ACETATE
     Indication: ACROMEGALY
     Dosage: 20 MG, QMO
     Route: 030
     Dates: start: 2003

REACTIONS (19)
  - Gastrointestinal pain [Unknown]
  - Asthenia [Unknown]
  - Malaise [Unknown]
  - Syncope [Unknown]
  - Panic reaction [Unknown]
  - Fear of injection [Unknown]
  - Needle issue [Unknown]
  - Sinusitis [Unknown]
  - Injection site pain [Unknown]
  - Feeling abnormal [Unknown]
  - Underdose [Unknown]
  - Vomiting [Unknown]
  - Injection site haemorrhage [Unknown]
  - Hypoacusis [Not Recovered/Not Resolved]
  - Disturbance in attention [Unknown]
  - Visual impairment [Unknown]
  - Anxiety [Unknown]
  - Chills [Unknown]
  - Injection site mass [Unknown]
